FAERS Safety Report 26204305 (Version 1)
Quarter: 2025Q4

REPORT INFORMATION
  Report Type: Report from Study
  Country: EU (occurrence: EU)
  Receive Date: 20251226
  Receipt Date: 20251226
  Transmission Date: 20260118
  Serious: Yes (Hospitalization)
  Sender: DAIICHI
  Company Number: EU-ASTRAZENECA-202511GLO006860DE

PATIENT
  Sex: Female
  Weight: 86 kg

DRUGS (9)
  1. ENHERTU [Suspect]
     Active Substance: FAM-TRASTUZUMAB DERUXTECAN-NXKI
     Indication: Product used for unknown indication
     Dosage: 5.4 MG/KG, QD
     Route: 042
  2. ZOMETA [Concomitant]
     Active Substance: ZOLEDRONIC ACID
     Indication: Product used for unknown indication
     Dosage: 4 MG,EVERY 12 WEEKS
     Route: 042
     Dates: start: 20210915
  3. PREGABALIN [Concomitant]
     Active Substance: PREGABALIN
     Indication: Product used for unknown indication
     Dosage: 100 MILLIGRAM, BID
     Route: 048
     Dates: start: 20250623
  4. APREPITANT [Concomitant]
     Active Substance: APREPITANT
     Indication: Nausea
     Dosage: 125 MG CYCLE ADMINISTRATION
     Route: 048
     Dates: start: 20250918
  5. APREPITANT [Concomitant]
     Active Substance: APREPITANT
     Dosage: 80 MG CYCLE ADMINISTRATION
     Route: 048
     Dates: start: 20250919
  6. DEXAMETHASONE SODIUM PHOSPHATE [Concomitant]
     Active Substance: DEXAMETHASONE SODIUM PHOSPHATE
     Indication: Nausea
     Dosage: 8 MG CYCLE ADMINISTRATION
     Route: 042
     Dates: start: 20250918
  7. ONDANSETRON [ONDANSETRON HYDROCHLORIDE DIHYDRATE] [Concomitant]
     Indication: Nausea
     Dosage: 8 MG CYCLE ADMINISTRATION
     Route: 042
     Dates: start: 20250918
  8. ONDANSETRON [ONDANSETRON HYDROCHLORIDE DIHYDRATE] [Concomitant]
     Dosage: 16 MG CYCLE ADMINISTRATION
     Route: 048
     Dates: start: 20250919
  9. AMINOPHYLLINE\QUININE SULFATE [Concomitant]
     Active Substance: AMINOPHYLLINE\QUININE SULFATE
     Indication: Product used for unknown indication
     Dosage: 200 MG, QD
     Route: 048
     Dates: start: 202509

REACTIONS (1)
  - Dyspnoea [Recovering/Resolving]

NARRATIVE: CASE EVENT DATE: 20250925
